FAERS Safety Report 5973552-8 (Version None)
Quarter: 2008Q4

REPORT INFORMATION
  Report Type: 
  Country: None (occurrence: None)
  Receive Date: 20081201
  Receipt Date: 20081120
  Transmission Date: 20090506
  Serious: Yes (Hospitalization)
  Sender: FDA-Public Use
  Company Number: SE-ASTRAZENECA-2008SE05393

PATIENT
  Age: 84 Year
  Sex: Female

DRUGS (5)
  1. FELODIPINE [Suspect]
     Route: 048
  2. METOPROLOL TARTRATE [Suspect]
     Route: 048
  3. ENALAPRIL MALEATE [Suspect]
     Route: 048
  4. FURIX [Suspect]
     Route: 048
     Dates: end: 20081008
  5. WARFARIN SODIUM [Concomitant]
     Route: 048

REACTIONS (1)
  - ORTHOSTATIC HYPOTENSION [None]
